FAERS Safety Report 8581133-5 (Version None)
Quarter: 2012Q2

REPORT INFORMATION
  Report Type: 
  Country: None (occurrence: None)
  Receive Date: 20120423
  Receipt Date: 20100810
  Transmission Date: 20120825
  Serious: Yes (Other)
  Sender: FDA-Public Use
  Company Number: PHHY2010US24860

PATIENT
  Age: 74 Year
  Sex: Male

DRUGS (2)
  1. SYNTHROID [Concomitant]
  2. EXJADE [Suspect]
     Indication: HAEMOCHROMATOSIS
     Dosage: 1500 MG, QD, ORAL
     Route: 048
     Dates: start: 20091203, end: 20100608

REACTIONS (2)
  - RASH GENERALISED [None]
  - RASH MACULO-PAPULAR [None]
